FAERS Safety Report 10633734 (Version 1)
Quarter: 2014Q4

REPORT INFORMATION
  Report Type: Report from Study
  Country: BR (occurrence: BR)
  Receive Date: 20141205
  Receipt Date: 20141205
  Transmission Date: 20150529
  Serious: Yes (Hospitalization, Other)
  Sender: FDA-Public Use
  Company Number: PHHY2014BR159212

PATIENT
  Age: 81 Year
  Sex: Male

DRUGS (2)
  1. NEOZINE [Concomitant]
     Active Substance: LEVOMEPROMAZINE
     Indication: NERVOUSNESS
     Dosage: 50 GTT, QD (20 DROPS IN THE MORNING AND 30 DROPS AT NIGHT)
     Route: 065
  2. EXELON [Suspect]
     Active Substance: RIVASTIGMINE TARTRATE
     Indication: DEMENTIA ALZHEIMER^S TYPE
     Dosage: 2 DF, QD
     Route: 065

REACTIONS (6)
  - Cerebrovascular accident [Unknown]
  - Aphasia [Not Recovered/Not Resolved]
  - Mastication disorder [Recovering/Resolving]
  - Disturbance in attention [Recovering/Resolving]
  - Somnolence [Unknown]
  - Hypokinesia [Not Recovered/Not Resolved]
